FAERS Safety Report 7863601-4 (Version None)
Quarter: 2011Q4

REPORT INFORMATION
  Report Type: 
  Country: None (occurrence: None)
  Receive Date: 20111027
  Receipt Date: 20101207
  Transmission Date: 20120403
  Serious: No
  Sender: FDA-Public Use
  Company Number: US-AMGEN-USASP2010008003

PATIENT
  Age: 63 Year
  Sex: Female

DRUGS (1)
  1. ENBREL [Suspect]
     Indication: RHEUMATOID ARTHRITIS
     Dosage: 50 MG, QWK
     Dates: start: 20000601, end: 20101121

REACTIONS (5)
  - COUGH [None]
  - DYSPNOEA [None]
  - FATIGUE [None]
  - BRONCHITIS [None]
  - INJECTION SITE PAIN [None]
